FAERS Safety Report 8787749 (Version 1)
Quarter: 2012Q4

REPORT INFORMATION
  Report Type: 
  Country: US (occurrence: US)
  Receive Date: 20120914
  Receipt Date: 20120914
  Transmission Date: 20130627
  Serious: Yes (Hospitalization)
  Sender: FDA-Public Use
  Company Number: US-VERTEX PHARMACEUTICAL INC.-AE-2012-008705

PATIENT
  Age: 59 Year
  Sex: Female
  Weight: 50 kg

DRUGS (8)
  1. INCIVEK [Suspect]
     Indication: HEPATITIS C
     Route: 048
     Dates: start: 20120430, end: 20120525
  2. INCIVEK [Suspect]
     Route: 048
     Dates: start: 20120528
  3. RIBAVIRIN [Concomitant]
     Indication: HEPATITIS C
     Dates: start: 20120430, end: 20120517
  4. RIBAVIRIN [Concomitant]
     Dates: start: 20120517, end: 20120525
  5. RIBAVIRIN [Concomitant]
     Dates: start: 20120528
  6. PEGASYS [Concomitant]
     Indication: HEPATITIS C
     Route: 058
     Dates: start: 20120430, end: 20120517
  7. PEGASYS [Concomitant]
     Route: 058
     Dates: start: 20120517, end: 20120525
  8. PEGASYS [Concomitant]
     Dates: start: 20120528

REACTIONS (4)
  - Anaemia [Not Recovered/Not Resolved]
  - Photophobia [Not Recovered/Not Resolved]
  - Vertigo [Not Recovered/Not Resolved]
  - Blood pressure decreased [Unknown]
